FAERS Safety Report 9831976 (Version 4)
Quarter: 2014Q2

REPORT INFORMATION
  Report Type: Report from Study
  Country: BY (occurrence: BY)
  Receive Date: 20140121
  Receipt Date: 20140403
  Transmission Date: 20141212
  Serious: Yes (Death, Hospitalization)
  Sender: FDA-Public Use
  Company Number: BY-ACTELION-A-CH2013-83585

PATIENT
  Age: 37 Year
  Sex: Male
  Weight: 66 kg

DRUGS (8)
  1. MACITENTAN [Suspect]
     Indication: PULMONARY ARTERIAL HYPERTENSION
     Dosage: 10 MG, QD
     Route: 048
     Dates: start: 20120209, end: 20131223
  2. SILDENAFIL [Concomitant]
     Indication: PRODUCT USED FOR UNKNOWN INDICATION
     Dosage: UNK
     Dates: start: 200902
  3. CARDIOMAGNYL [Concomitant]
     Indication: PRODUCT USED FOR UNKNOWN INDICATION
     Dosage: UNK
     Dates: start: 200902
  4. IVABRADINE [Concomitant]
     Indication: PRODUCT USED FOR UNKNOWN INDICATION
     Dosage: UNK
     Dates: start: 20120209
  5. TORASEMIDE [Concomitant]
     Indication: PRODUCT USED FOR UNKNOWN INDICATION
     Dosage: UNK
     Dates: start: 20110905
  6. LERCANIDIPINE [Concomitant]
     Indication: PRODUCT USED FOR UNKNOWN INDICATION
     Dosage: UNK
     Dates: start: 20120515
  7. VEROSPIRON [Concomitant]
     Indication: PRODUCT USED FOR UNKNOWN INDICATION
     Dosage: UNK
     Dates: start: 20121206
  8. OMEPRAZOLE [Concomitant]
     Dosage: UNK
     Dates: start: 20130813

REACTIONS (16)
  - Pulmonary arterial hypertension [Fatal]
  - Condition aggravated [Fatal]
  - Dyspnoea exertional [Fatal]
  - Hepatomegaly [Fatal]
  - Dyspnoea [Fatal]
  - Cough [Fatal]
  - Asthenia [Fatal]
  - Haemoptysis [Fatal]
  - Pericardial effusion [Fatal]
  - Ascites [Fatal]
  - Hepatic congestion [Fatal]
  - Respiratory distress [Fatal]
  - Circulatory collapse [Fatal]
  - Duodenal ulcer [Unknown]
  - Pneumonia [Unknown]
  - Weight increased [Fatal]
